FAERS Safety Report 12929346 (Version 1)
Quarter: 2016Q4

REPORT INFORMATION
  Report Type: Spontaneous
  Country: JP (occurrence: JP)
  Receive Date: 20161110
  Receipt Date: 20161110
  Transmission Date: 20170207
  Serious: Yes (Hospitalization)
  Sender: FDA-Public Use
  Company Number: 2016-001312 WARNER CHILCOTT

PATIENT
  Age: 66 Year
  Sex: Female

DRUGS (1)
  1. BENET [Suspect]
     Active Substance: RISEDRONATE SODIUM
     Indication: OSTEOPOROSIS
     Route: 048
     Dates: start: 20160325

REACTIONS (11)
  - Abdominal distension [Recovered/Resolved]
  - Malaise [Recovered/Resolved]
  - C-reactive protein increased [Recovered/Resolved]
  - Chills [Recovered/Resolved]
  - Vulvovaginal swelling [Recovered/Resolved]
  - Inflammation [Recovered/Resolved]
  - Vulval cellulitis [Recovered/Resolved]
  - Vulvovaginal erythema [Recovered/Resolved]
  - Oedema peripheral [Recovered/Resolved]
  - Pyrexia [Recovered/Resolved]
  - Feeling hot [Recovered/Resolved]

NARRATIVE: CASE EVENT DATE: 20160501
